FAERS Safety Report 5281251-3 (Version None)
Quarter: 2007Q1

REPORT INFORMATION
  Report Type: 
  Country: None (occurrence: None)
  Receive Date: 20070326
  Receipt Date: 20070314
  Transmission Date: 20070707
  Serious: Yes (Hospitalization)
  Sender: FDA-Public Use
  Company Number: 2007-00176

PATIENT
  Age: 43 Year
  Sex: Female

DRUGS (2)
  1. VELCADE [Suspect]
     Indication: MULTIPLE MYELOMA
     Dosage: 1.30 MG/M2
     Dates: start: 20070112, end: 20070205
  2. DEXAMETHASONE [Concomitant]

REACTIONS (5)
  - HYPOAESTHESIA [None]
  - INFECTION [None]
  - PNEUMONIA ASPIRATION [None]
  - TUMOUR LYSIS SYNDROME [None]
  - VOMITING [None]
